FAERS Safety Report 22388082 (Version 1)
Quarter: 2023Q2

REPORT INFORMATION
  Report Type: Spontaneous
  Country: US (occurrence: US)
  Receive Date: 20230531
  Receipt Date: 20230531
  Transmission Date: 20230721
  Serious: Yes (Life-Threatening, Hospitalization, Other)
  Sender: FDA-Public Use
  Company Number: US-PFIZER INC-202300201261

PATIENT
  Age: 19 Year
  Sex: Male

DRUGS (3)
  1. AMINOCAPROIC ACID [Suspect]
     Active Substance: AMINOCAPROIC ACID
     Indication: Acquired Von Willebrand^s disease
     Dosage: UNK
  2. PANTOPRAZOLE [Suspect]
     Active Substance: PANTOPRAZOLE
     Indication: Acquired Von Willebrand^s disease
     Dosage: UNK
  3. OCTREOTIDE [Suspect]
     Active Substance: OCTREOTIDE
     Indication: Acquired Von Willebrand^s disease
     Dosage: UNK

REACTIONS (1)
  - Drug ineffective [Unknown]
